FAERS Safety Report 9257273 (Version 3)
Quarter: 2013Q2

REPORT INFORMATION
  Report Type: Spontaneous
  Country: BR (occurrence: BR)
  Receive Date: 20130426
  Receipt Date: 20130628
  Transmission Date: 20140414
  Serious: Yes (Other)
  Sender: FDA-Public Use
  Company Number: PHHY2013BR040271

PATIENT
  Age: 65 Year
  Sex: Female

DRUGS (2)
  1. FORASEQ [Suspect]
     Indication: ASTHMA
     Dosage: 1 DF, DAILY
  2. FORASEQ [Suspect]
     Dosage: 1 DF, BID (AS A MEASURE TO BREATHLESSNESS AND LOT OF COUGH)

REACTIONS (6)
  - Attention deficit/hyperactivity disorder [Unknown]
  - Obsessive-compulsive disorder [Recovering/Resolving]
  - Disturbance in attention [Unknown]
  - Dyspnoea [Recovered/Resolved]
  - Somnolence [Not Recovered/Not Resolved]
  - Cough [Recovered/Resolved]
